FAERS Safety Report 7723049-X (Version None)
Quarter: 2011Q3

REPORT INFORMATION
  Report Type: 
  Country: None (occurrence: None)
  Receive Date: 20110901
  Receipt Date: 20110819
  Transmission Date: 20111222
  Serious: No
  Sender: FDA-Public Use
  Company Number: US-B.I. PHARMACEUTICALS,INC./RIDGEFIELD-2011-BP-20420BP

PATIENT
  Sex: Male

DRUGS (8)
  1. TEGRETOL [Concomitant]
     Indication: CONVULSION
     Route: 048
  2. KEPPRA [Concomitant]
     Indication: CONVULSION
     Route: 048
  3. PRADAXA [Suspect]
     Indication: ATRIAL FIBRILLATION
     Dosage: 300 MG
     Route: 048
  4. LEXAPRO [Concomitant]
     Indication: NERVOUSNESS
     Route: 048
  5. LIPITOR [Concomitant]
     Indication: BLOOD CHOLESTEROL INCREASED
     Route: 048
  6. TOPROL-XL [Concomitant]
     Indication: HYPERTENSION
     Route: 048
  7. ZARONTIN [Concomitant]
     Indication: CONVULSION
     Route: 048
  8. HYDROCHLOROTHIAZIDE [Concomitant]
     Indication: HYPERTENSION
     Route: 048

REACTIONS (3)
  - PAIN IN EXTREMITY [None]
  - MEMORY IMPAIRMENT [None]
  - ARTHRALGIA [None]
